FAERS Safety Report 8827267 (Version 1)
Quarter: 2012Q4

REPORT INFORMATION
  Report Type: 
  Country: US (occurrence: US)
  Receive Date: 20121005
  Receipt Date: 20121005
  Transmission Date: 20130627
  Serious: Yes (Hospitalization)
  Sender: FDA-Public Use
  Company Number: US-ENDO PHARMACEUTICALS INC.-OPER20120745

PATIENT
  Sex: Female
  Weight: 63.56 kg

DRUGS (1)
  1. OPANA ER 20MG [Suspect]
     Indication: PAIN
     Dosage: 20 MG
     Route: 048
     Dates: start: 2009, end: 201209

REACTIONS (3)
  - Extradural abscess [Unknown]
  - Adverse event [Unknown]
  - Joint swelling [Unknown]
